FAERS Safety Report 14442130 (Version 1)
Quarter: 2018Q1

REPORT INFORMATION
  Report Type: Report from Study
  Country: None (occurrence: US)
  Receive Date: 20180125
  Receipt Date: 20180125
  Transmission Date: 20180509
  Serious: Yes (Other)
  Sender: FDA-Public Use
  Company Number: US-TEVA-2018-US-850250

PATIENT

DRUGS (4)
  1. LIPIODOL [Suspect]
     Active Substance: ETHIODIZED OIL
     Indication: HEPATOCELLULAR CARCINOMA
     Dosage: 3.5 ML (EMULSION)
     Route: 050
  2. EPIRUBICIN [Suspect]
     Active Substance: EPIRUBICIN
     Indication: HEPATOCELLULAR CARCINOMA
     Dosage: 25 MG (EMULSION)
     Route: 050
  3. EPIRUBICIN [Suspect]
     Active Substance: EPIRUBICIN
     Indication: HEPATOCELLULAR CARCINOMA
     Dosage: 50 MG (EMULSION)
     Route: 050
  4. LIPIODOL [Suspect]
     Active Substance: ETHIODIZED OIL
     Indication: HEPATOCELLULAR CARCINOMA
     Dosage: 7 ML (EMULSION)
     Route: 050

REACTIONS (1)
  - Arterial disorder [Unknown]
